FAERS Safety Report 18251945 (Version 1)
Quarter: 2020Q3

REPORT INFORMATION
  Report Type: Spontaneous
  Country: US (occurrence: US)
  Receive Date: 20200909
  Receipt Date: 20200909
  Transmission Date: 20201103
  Serious: Yes (Hospitalization)
  Sender: FDA-Public Use
  Company Number: None

PATIENT
  Age: 55 Year
  Sex: Female

DRUGS (5)
  1. TELMISARTAN. [Concomitant]
     Active Substance: TELMISARTAN
  2. HUMIRA [Suspect]
     Active Substance: ADALIMUMAB
     Indication: CROHN^S DISEASE
     Dosage: ?          OTHER DOSE:1 PEN;OTHER FREQUENCY:Q15D;?
     Route: 058
     Dates: start: 20200618
  3. ESCITALOPRAM [Concomitant]
     Active Substance: ESCITALOPRAM OXALATE
  4. METOPROL SUC ER [Concomitant]
  5. CLENPIQ SOL [Concomitant]

REACTIONS (3)
  - Paraesthesia [None]
  - Decreased appetite [None]
  - Diarrhoea [None]

NARRATIVE: CASE EVENT DATE: 20200901
